FAERS Safety Report 7493560-8 (Version None)
Quarter: 2011Q2

REPORT INFORMATION
  Report Type: 
  Country: None (occurrence: None)
  Receive Date: 20110519
  Receipt Date: 20110519
  Transmission Date: 20111010
  Serious: Yes (Hospitalization)
  Sender: FDA-Public Use
  Company Number: None

PATIENT
  Sex: Female
  Weight: 103.1 kg

DRUGS (4)
  1. NEULASTA [Suspect]
     Dosage: 42MG
  2. DOXORUBICIN HYDROCHLORIDE [Suspect]
     Dosage: 738MG
  3. CYCLOPHOSPHAMIDE [Suspect]
     Dosage: 7368MG
  4. TAXOL [Suspect]
     Dosage: 345MG

REACTIONS (4)
  - MYOCARDIAL INFARCTION [None]
  - ACUTE MYELOID LEUKAEMIA [None]
  - PALPITATIONS [None]
  - DIZZINESS [None]
